FAERS Safety Report 25387488 (Version 1)
Quarter: 2025Q2

REPORT INFORMATION
  Report Type: Report from Study
  Country: TH (occurrence: TH)
  Receive Date: 20250602
  Receipt Date: 20250602
  Transmission Date: 20250717
  Serious: Yes (Hospitalization)
  Sender: ALEXION PHARMACEUTICALS
  Company Number: TH-AstraZeneca-CH-00881104A

PATIENT

DRUGS (1)
  1. OLAPARIB [Suspect]
     Active Substance: OLAPARIB
     Indication: Peritoneal cancer index

REACTIONS (12)
  - Pyrexia [Unknown]
  - Rash [Unknown]
  - Drug hypersensitivity [Unknown]
  - Oral pain [Unknown]
  - Gingival pain [Unknown]
  - Glossodynia [Unknown]
  - Oropharyngeal pain [Unknown]
  - Mastication disorder [Unknown]
  - Rash macular [Unknown]
  - Skin disorder [Unknown]
  - Skin exfoliation [Unknown]
  - Pain [Unknown]
